FAERS Safety Report 8083122-6 (Version None)
Quarter: 2012Q1

REPORT INFORMATION
  Report Type: 
  Country: None (occurrence: None)
  Receive Date: 20120130
  Receipt Date: 20120120
  Transmission Date: 20120608
  Serious: Yes (Other)
  Sender: FDA-Public Use
  Company Number: US-ASTRAZENECA-2012SE04642

PATIENT
  Sex: Male

DRUGS (6)
  1. CIMETIDINE [Concomitant]
  2. PROTONIX [Concomitant]
  3. NEXIUM [Suspect]
     Route: 048
  4. ZANTAC [Concomitant]
  5. PREVACID [Concomitant]
  6. OMEPRAZOLE [Suspect]
     Route: 048

REACTIONS (6)
  - LEUKAEMIA [None]
  - DRUG INEFFECTIVE [None]
  - DRUG DOSE OMISSION [None]
  - DISCOMFORT [None]
  - DEAFNESS [None]
  - CARDIAC DISORDER [None]
